FAERS Safety Report 17059935 (Version 1)
Quarter: 2019Q4

REPORT INFORMATION
  Report Type: Spontaneous
  Country: US (occurrence: US)
  Receive Date: 20191121
  Receipt Date: 20191121
  Transmission Date: 20200122
  Serious: Yes (Other)
  Sender: FDA-Public Use
  Company Number: US-NOVOPROD-670011

PATIENT
  Age: 60 Year
  Sex: Male

DRUGS (1)
  1. NOVOLOG [Suspect]
     Active Substance: INSULIN ASPART
     Indication: TYPE 1 DIABETES MELLITUS
     Dosage: 1 UNITS FOR 8 GRAMS OF CARBS, KEPT GIVING 10 UNITS EVERY 30 MINUTES AS TREATMENT
     Route: 058

REACTIONS (4)
  - Subcutaneous drug absorption impaired [Unknown]
  - Hypoglycaemic unconsciousness [Recovered/Resolved]
  - Product quality issue [Unknown]
  - Blood glucose increased [Recovered/Resolved]

NARRATIVE: CASE EVENT DATE: 20190619
